FAERS Safety Report 7655923-7 (Version None)
Quarter: 2011Q3

REPORT INFORMATION
  Report Type: 
  Country: None (occurrence: None)
  Receive Date: 20110804
  Receipt Date: 20110804
  Transmission Date: 20111222
  Serious: Yes (Death)
  Sender: FDA-Public Use
  Company Number: None

PATIENT
  Age: 23 Year
  Sex: Male
  Weight: 139 kg

DRUGS (21)
  1. PEGASPARGASE [Suspect]
     Indication: ACUTE LYMPHOCYTIC LEUKAEMIA
     Dosage: 6000 UNITS
     Route: 030
     Dates: start: 20110531, end: 20110531
  2. VASOPRESSIN [Concomitant]
  3. AMLODIPINE [Concomitant]
  4. ENOXAPARIN [Concomitant]
  5. ONDANSETRON [Concomitant]
  6. TOBRAMYCIN [Concomitant]
  7. DOBUTAMINE HCL [Concomitant]
  8. FENTANYL [Concomitant]
  9. RASBURICASE [Concomitant]
  10. ONDANSETRIN [Concomitant]
  11. VINCRISTINE [Concomitant]
  12. ACYCLOVIR [Concomitant]
  13. DOPAMINE HCL [Concomitant]
  14. FILGRASTIM [Concomitant]
  15. METHYLPREDNISOLONE [Concomitant]
  16. PROMETHAZINE [Concomitant]
  17. TPN [Concomitant]
  18. DOXORUBICIN HCL [Concomitant]
  19. METHOTREXATE [Concomitant]
  20. INSULIN [Concomitant]
  21. SEVELAMER [Concomitant]

REACTIONS (4)
  - PANCREATITIS [None]
  - SEPTIC SHOCK [None]
  - MULTI-ORGAN FAILURE [None]
  - HYPERBILIRUBINAEMIA [None]
